FAERS Safety Report 20236672 (Version 1)
Quarter: 2021Q4

REPORT INFORMATION
  Report Type: Spontaneous
  Country: US (occurrence: None)
  Receive Date: 20211227
  Receipt Date: 20211227
  Transmission Date: 20220304
  Serious: No
  Sender: FDA-Public Use
  Company Number: None

PATIENT
  Sex: Female

DRUGS (15)
  1. AMBRISENTAN [Suspect]
     Active Substance: AMBRISENTAN
     Indication: Pulmonary arterial hypertension
     Dosage: FREQUENCY : DAILY;?
     Route: 048
  2. AMBRISENTAN [Suspect]
     Active Substance: AMBRISENTAN
     Indication: Essential hypertension
  3. LETAIRIS [Suspect]
     Active Substance: AMBRISENTAN
     Indication: Pulmonary arterial hypertension
     Dosage: FREQUENCY : DAILY;?
     Route: 048
  4. LETAIRIS [Suspect]
     Active Substance: AMBRISENTAN
     Indication: Essential hypertension
  5. LETAIRIS [Concomitant]
     Active Substance: AMBRISENTAN
  6. CILOSTAZOL [Concomitant]
     Active Substance: CILOSTAZOL
  7. PREDNISONE [Concomitant]
     Active Substance: PREDNISONE
  8. COLCRYS [Concomitant]
     Active Substance: COLCHICINE
  9. ADEMPAS [Concomitant]
     Active Substance: RIOCIGUAT
  10. LEVOCETIRIZINE DIHYDROCHL [Concomitant]
  11. FUROSEMIDE [Concomitant]
     Active Substance: FUROSEMIDE
  12. LOVASTATIN [Concomitant]
     Active Substance: LOVASTATIN
  13. VALSARTAN/HYDROCHLOROTHIA [Concomitant]
  14. TYLENOL EXTRA STRENGTH [Concomitant]
     Active Substance: ACETAMINOPHEN
  15. LEVOTHYROXINE SODIUM [Concomitant]
     Active Substance: LEVOTHYROXINE SODIUM

REACTIONS (5)
  - Weight increased [None]
  - Fluid retention [None]
  - Drug ineffective [None]
  - Therapy interrupted [None]
  - Manufacturing product shipping issue [None]
